FAERS Safety Report 7512776-5 (Version None)
Quarter: 2011Q2

REPORT INFORMATION
  Report Type: 
  Country: None (occurrence: None)
  Receive Date: 20110531
  Receipt Date: 20110529
  Transmission Date: 20111010
  Serious: Yes (Death)
  Sender: FDA-Public Use
  Company Number: B0701680A

PATIENT
  Age: 56 Year
  Sex: Female

DRUGS (5)
  1. TYKERB [Suspect]
     Indication: BREAST CANCER
     Dosage: 1250MG PER DAY
     Route: 048
     Dates: start: 20080701, end: 20090201
  2. NAVELBINE [Concomitant]
  3. UNKNOWN [Concomitant]
  4. EXEMESTANE [Suspect]
     Route: 065
     Dates: start: 20090201, end: 20090201
  5. DOCETAXEL [Concomitant]

REACTIONS (3)
  - HEADACHE [None]
  - DISEASE PROGRESSION [None]
  - DIARRHOEA [None]
